FAERS Safety Report 12486157 (Version 2)
Quarter: 2016Q3

REPORT INFORMATION
  Report Type: Report from Study
  Country: DE (occurrence: DE)
  Receive Date: 20160621
  Receipt Date: 20160712
  Transmission Date: 20161109
  Serious: Yes (Other)
  Sender: FDA-Public Use
  Company Number: DE-AMGEN-DEUSL2016077549

PATIENT
  Age: 45 Year
  Sex: Male
  Weight: 105 kg

DRUGS (4)
  1. VECTIBIX [Suspect]
     Active Substance: PANITUMUMAB
     Indication: COLON CANCER
     Dosage: 6 MG/KG, UNK
     Route: 042
     Dates: start: 20151124
  2. SODIUM FOLINATE [Suspect]
     Active Substance: LEUCOVORIN
     Indication: COLON CANCER
     Dosage: 400 MG/M2, Q14D
     Route: 065
     Dates: start: 20151124, end: 20160426
  3. OXALIPLATIN. [Suspect]
     Active Substance: OXALIPLATIN
     Indication: COLON CANCER
     Dosage: 85 MG/M2, Q14D
     Route: 065
     Dates: start: 20151124, end: 20160426
  4. FU [Suspect]
     Active Substance: FLUOROURACIL
     Indication: COLON CANCER
     Dosage: 2400 MG/M2, Q14D
     Route: 065
     Dates: start: 20151124, end: 20160426

REACTIONS (1)
  - Polyneuropathy [Not Recovered/Not Resolved]

NARRATIVE: CASE EVENT DATE: 20160401
